FAERS Safety Report 21950209 (Version 1)
Quarter: 2023Q1

REPORT INFORMATION
  Report Type: Spontaneous
  Country: US (occurrence: None)
  Receive Date: 20230202
  Receipt Date: 20230202
  Transmission Date: 20230418
  Serious: No
  Sender: FDA-Public Use
  Company Number: None

PATIENT
  Age: 32 Year
  Sex: Male
  Weight: 85.95 kg

DRUGS (16)
  1. DEXTROAMPHET SACCHARAT, AMPHET ASPARTATE, DEXTROAMPHET SULFATE AND AMP [Suspect]
     Active Substance: AMPHETAMINE ASPARTATE\AMPHETAMINE SULFATE\DEXTROAMPHETAMINE SACCHARATE\DEXTROAMPHETAMINE SULFATE
     Indication: Attention deficit hyperactivity disorder
     Dosage: OTHER QUANTITY : 1 TABLET(S);?FREQUENCY : TWICE A DAY;?
     Route: 048
     Dates: start: 20221019, end: 20230202
  2. d amphetamine salts [Concomitant]
  3. BUPROPION [Concomitant]
     Active Substance: BUPROPION
  4. MONTELUKAST [Concomitant]
     Active Substance: MONTELUKAST SODIUM
  5. BREO ELLIPTA [Concomitant]
     Active Substance: FLUTICASONE FUROATE\VILANTEROL TRIFENATATE
  6. MINOXIDIL [Concomitant]
     Active Substance: MINOXIDIL
  7. AZELASTINE [Concomitant]
     Active Substance: AZELASTINE
  8. ALBUTEROL SULFATE [Concomitant]
     Active Substance: ALBUTEROL SULFATE
  9. CETIRIZINE [Concomitant]
     Active Substance: CETIRIZINE HYDROCHLORIDE
  10. VITAMIN D3 [Concomitant]
     Active Substance: CHOLECALCIFEROL
  11. ZINC PICOLINATE [Concomitant]
     Active Substance: ZINC PICOLINATE
  12. FLONASE SENSIMIST ALLERGY RELIEF [Concomitant]
     Active Substance: FLUTICASONE FUROATE
  13. ARGININE [Concomitant]
     Active Substance: ARGININE
  14. D aspartic acid [Concomitant]
  15. Vitafusion Men^s Multivitamin Gummies [Concomitant]
  16. Goli Ashwagandha gummies [Concomitant]

REACTIONS (6)
  - Therapeutic response decreased [None]
  - Product substitution issue [None]
  - Palpitations [None]
  - Headache [None]
  - Dizziness [None]
  - Bruxism [None]

NARRATIVE: CASE EVENT DATE: 20221019
